FAERS Safety Report 9267214 (Version 2)
Quarter: 2013Q2

REPORT INFORMATION
  Report Type: Spontaneous
  Country: US (occurrence: US)
  Receive Date: 20130502
  Receipt Date: 20130508
  Transmission Date: 20140414
  Serious: Yes (Other)
  Sender: FDA-Public Use
  Company Number: US-PFIZER INC-2013133437

PATIENT
  Age: 54 Year
  Sex: Female
  Weight: 58.1 kg

DRUGS (5)
  1. DEPO-PROVERA [Suspect]
     Indication: POSTMENOPAUSAL HAEMORRHAGE
     Dosage: 150 MG, EVERY 3 MONTHS
     Route: 030
     Dates: start: 20130410
  2. IBUPROFEN [Suspect]
     Indication: PARAESTHESIA
     Dosage: 800 MG, UNK
     Dates: start: 201304
  3. IBUPROFEN [Suspect]
     Indication: HYPOAESTHESIA
  4. IBUPROFEN [Suspect]
     Indication: PAIN IN EXTREMITY
  5. IBUPROFEN [Suspect]
     Indication: ABDOMINAL PAIN LOWER

REACTIONS (21)
  - Ocular icterus [Not Recovered/Not Resolved]
  - Hypertension [Not Recovered/Not Resolved]
  - Hypoaesthesia [Not Recovered/Not Resolved]
  - Paraesthesia [Not Recovered/Not Resolved]
  - Pain in extremity [Not Recovered/Not Resolved]
  - Abdominal pain lower [Not Recovered/Not Resolved]
  - Night sweats [Not Recovered/Not Resolved]
  - Weight decreased [Not Recovered/Not Resolved]
  - Skin atrophy [Not Recovered/Not Resolved]
  - Dry skin [Not Recovered/Not Resolved]
  - Vision blurred [Not Recovered/Not Resolved]
  - Hypotonia [Not Recovered/Not Resolved]
  - Restlessness [Not Recovered/Not Resolved]
  - Insomnia [Not Recovered/Not Resolved]
  - Nausea [Not Recovered/Not Resolved]
  - Malaise [Not Recovered/Not Resolved]
  - Asthenia [Not Recovered/Not Resolved]
  - Feeling abnormal [Not Recovered/Not Resolved]
  - Drug intolerance [Not Recovered/Not Resolved]
  - Dyspnoea [Not Recovered/Not Resolved]
  - Decreased appetite [Not Recovered/Not Resolved]
